FAERS Safety Report 22619472 (Version 1)
Quarter: 2023Q2

REPORT INFORMATION
  Report Type: Spontaneous
  Country: US (occurrence: US)
  Receive Date: 20230620
  Receipt Date: 20230620
  Transmission Date: 20230721
  Serious: Yes (Hospitalization, Other)
  Sender: FDA-Public Use
  Company Number: US-AMGEN-USASP2023101163

PATIENT
  Age: 80 Year
  Sex: Female

DRUGS (4)
  1. EVENITY [Suspect]
     Active Substance: ROMOSOZUMAB-AQQG
     Indication: Osteoporosis
     Dosage: 210 MILLIGRAM, QMO
     Route: 065
     Dates: start: 201912, end: 202012
  2. EVENITY [Suspect]
     Active Substance: ROMOSOZUMAB-AQQG
  3. PROLIA [Suspect]
     Active Substance: DENOSUMAB
     Indication: Osteoporosis
     Dosage: 60 MILLIGRAM, Q6MO
     Route: 065
     Dates: start: 202102, end: 202108
  4. RANIBIZUMAB [Concomitant]
     Active Substance: RANIBIZUMAB
     Indication: Macular degeneration
     Dosage: UNK UNK, Q3MO

REACTIONS (5)
  - Osteonecrosis of jaw [Recovered/Resolved]
  - Orocutaneous fistula [Recovered/Resolved]
  - Tooth fracture [Recovered/Resolved]
  - Dental restoration failure [Recovered/Resolved]
  - Dental paraesthesia [Recovered/Resolved]

NARRATIVE: CASE EVENT DATE: 20210101
